FAERS Safety Report 20840458 (Version 1)
Quarter: 2022Q2

REPORT INFORMATION
  Report Type: Spontaneous
  Country: IT (occurrence: IT)
  Receive Date: 20220517
  Receipt Date: 20220517
  Transmission Date: 20220720
  Serious: Yes (Hospitalization)
  Sender: FDA-Public Use
  Company Number: IT-NOVARTISPH-NVSC2022IT112625

PATIENT
  Age: 85 Year
  Sex: Male

DRUGS (4)
  1. DEXAMETHASONE [Suspect]
     Active Substance: DEXAMETHASONE
     Indication: Plasma cell myeloma
     Dosage: 20 MG, QW
     Route: 048
     Dates: start: 20200317, end: 20200612
  2. REVLIMID [Suspect]
     Active Substance: LENALIDOMIDE
     Indication: Plasma cell myeloma
     Dosage: 15 MG, QD
     Route: 048
     Dates: start: 20200317, end: 20200407
  3. REVLIMID [Suspect]
     Active Substance: LENALIDOMIDE
     Dosage: 15 MG, QD
     Route: 048
     Dates: start: 20200418, end: 20200508
  4. REVLIMID [Suspect]
     Active Substance: LENALIDOMIDE
     Dosage: 15 MG, QD
     Route: 048
     Dates: start: 20200516, end: 20200605

REACTIONS (1)
  - COVID-19 [Recovered/Resolved]

NARRATIVE: CASE EVENT DATE: 20210720
